FAERS Safety Report 23450113 (Version 2)
Quarter: 2024Q1

REPORT INFORMATION
  Report Type: Report from Study
  Country: AE (occurrence: AE)
  Receive Date: 20240129
  Receipt Date: 20240214
  Transmission Date: 20240410
  Serious: Yes (Hospitalization)
  Sender: FDA-Public Use
  Company Number: AE-BAYER-2024A014146

PATIENT
  Sex: Female

DRUGS (1)
  1. EYLEA [Suspect]
     Active Substance: AFLIBERCEPT
     Indication: Diabetic retinal oedema
     Dosage: SOLUTION FOR INJECTION, 40 MG/ML
     Dates: start: 20200816

REACTIONS (1)
  - Cataract operation [Recovered/Resolved]

NARRATIVE: CASE EVENT DATE: 20230915
